FAERS Safety Report 5781512-5 (Version None)
Quarter: 2008Q2

REPORT INFORMATION
  Report Type: 
  Country: None (occurrence: None)
  Receive Date: 20080623
  Receipt Date: 20080428
  Transmission Date: 20081010
  Serious: No
  Sender: FDA-Public Use
  Company Number: US-ASTRAZENECA-2008UW06563

PATIENT
  Age: 47 Year
  Sex: Female
  Weight: 86.4 kg

DRUGS (10)
  1. ENTOCORT EC [Suspect]
     Route: 048
  2. HUMIRA [Concomitant]
     Indication: CROHN'S DISEASE
     Dosage: 40 MG/0.8 ML PRE-FILLED SYRINGE
     Route: 058
     Dates: start: 20071001
  3. DULOXETINE HYDROCHLORIDE [Concomitant]
  4. PREGABALIN [Concomitant]
  5. MESALAMINE [Concomitant]
  6. POTASSIUM CHLORIDE [Concomitant]
     Indication: HYPOKALAEMIA
  7. ESOMEPRAZOLE MAGNESIUM [Concomitant]
  8. SPIRONOLACTONE [Concomitant]
  9. CLONAZEPAM [Concomitant]
  10. N-ACETYLCYSTEINE [Concomitant]
     Indication: SUPPLEMENTATION THERAPY

REACTIONS (2)
  - CROHN'S DISEASE [None]
  - DRUG INEFFECTIVE [None]
